FAERS Safety Report 6203268-4 (Version None)
Quarter: 2009Q2

REPORT INFORMATION
  Report Type: 
  Country: None (occurrence: None)
  Receive Date: 20090522
  Receipt Date: 20090522
  Transmission Date: 20091009
  Serious: Yes (Hospitalization)
  Sender: FDA-Public Use
  Company Number: None

PATIENT
  Age: 78 Year
  Sex: Male

DRUGS (2)
  1. PIPERACILLIN SODIUM AND TAZOBACTAM SODIUM [Suspect]
     Indication: UROSEPSIS
     Dosage: 3.375 GM QID IV
     Route: 042
     Dates: start: 20090401, end: 20090406
  2. WARFARIN SODIUM [Suspect]
     Indication: ATRIAL FLUTTER
     Dosage: 2.5 MG EVERY DAY PO
     Route: 048
     Dates: start: 20090404, end: 20090406

REACTIONS (1)
  - INTERNATIONAL NORMALISED RATIO INCREASED [None]
